FAERS Safety Report 5071589-7 (Version None)
Quarter: 2006Q3

REPORT INFORMATION
  Report Type: 
  Country: None (occurrence: None)
  Receive Date: 20060803
  Receipt Date: 20060803
  Transmission Date: 20061208
  Serious: Yes (Life-Threatening)
  Sender: FDA-Public Use
  Company Number: None

PATIENT
  Age: 32 Year
  Sex: Female
  Weight: 50.3493 kg

DRUGS (1)
  1. WELLBUTRIN [Suspect]
     Indication: DEPRESSION
     Dosage: 150 MG   TWICE A DAY   PO
     Route: 048
     Dates: start: 20060715, end: 20060801

REACTIONS (3)
  - CONDITION AGGRAVATED [None]
  - HOMICIDAL IDEATION [None]
  - SUICIDAL IDEATION [None]
